FAERS Safety Report 9434587 (Version 1)
Quarter: 2013Q3

REPORT INFORMATION
  Report Type: Spontaneous
  Country: US (occurrence: US)
  Receive Date: 20130801
  Receipt Date: 20130801
  Transmission Date: 20140515
  Serious: No
  Sender: FDA-Public Use
  Company Number: US-PFIZER INC-2013222521

PATIENT
  Sex: Female

DRUGS (9)
  1. LIPITOR [Suspect]
     Dosage: UNK
  2. TESSALON [Suspect]
     Dosage: UNK
  3. IBUPROFEN [Suspect]
     Dosage: UNK
  4. KETOPROFEN [Suspect]
     Dosage: UNK
  5. FELDENE [Suspect]
     Dosage: UNK
  6. AMANTADINE [Suspect]
     Dosage: UNK
  7. METFORMIN [Suspect]
     Dosage: UNK
  8. RISEDRONATE [Suspect]
     Dosage: UNK
  9. TOLMETIN [Suspect]
     Dosage: UNK

REACTIONS (1)
  - Drug hypersensitivity [Unknown]
